FAERS Safety Report 9372818 (Version 2)
Quarter: 2013Q3

REPORT INFORMATION
  Report Type: Spontaneous
  Country: US (occurrence: US)
  Receive Date: 20130627
  Receipt Date: 20130814
  Transmission Date: 20140515
  Serious: Yes (Other)
  Sender: FDA-Public Use
  Company Number: US-PFIZER INC-2013189092

PATIENT
  Age: 54 Year
  Sex: Male
  Weight: 106 kg

DRUGS (6)
  1. ARTHROTEC [Suspect]
     Indication: DERMATITIS
     Dosage: UNK, ONCE A DAY
     Route: 048
     Dates: start: 201306, end: 201306
  2. LISINOPRIL [Concomitant]
     Indication: HYPERTENSION
     Dosage: UNK
  3. ASPIRIN [Concomitant]
     Dosage: UNK, ONCE A DAY
  4. PREVACID [Concomitant]
     Indication: GASTROOESOPHAGEAL REFLUX DISEASE
     Dosage: UNK
  5. HYDROCORTISONE [Concomitant]
     Indication: BACK PAIN
     Dosage: UNK
  6. CLONAZEPAM [Concomitant]
     Dosage: 2 MG, UNK

REACTIONS (6)
  - Blood pressure increased [Not Recovered/Not Resolved]
  - Drug hypersensitivity [Not Recovered/Not Resolved]
  - Skin reaction [Not Recovered/Not Resolved]
  - Urticaria [Not Recovered/Not Resolved]
  - Rash papular [Not Recovered/Not Resolved]
  - Off label use [Unknown]
